FAERS Safety Report 10083996 (Version 1)
Quarter: 2014Q2

REPORT INFORMATION
  Report Type: Spontaneous
  Country: DE (occurrence: None)
  Receive Date: 20140415
  Receipt Date: 20140415
  Transmission Date: 20141212
  Serious: Yes (Other)
  Sender: FDA-Public Use
  Company Number: 2014P1002967

PATIENT
  Age: 21 Day
  Sex: Female

DRUGS (1)
  1. DEXAMETHASONE [Suspect]
     Indication: RESPIRATORY FAILURE

REACTIONS (4)
  - Cardiac murmur [None]
  - Poor peripheral circulation [None]
  - Cardiac output decreased [None]
  - Cardiac hypertrophy [None]
